FAERS Safety Report 8441515-9 (Version None)
Quarter: 2012Q2

REPORT INFORMATION
  Report Type: 
  Country: None (occurrence: None)
  Receive Date: 20120615
  Receipt Date: 20120606
  Transmission Date: 20120825
  Serious: Yes (Other)
  Sender: FDA-Public Use
  Company Number: US-ASTRAZENECA-2010SE28779

PATIENT
  Age: 62 Year
  Sex: Female
  Weight: 79.4 kg

DRUGS (6)
  1. SEROQUEL [Suspect]
     Indication: DEPRESSION
     Route: 048
     Dates: end: 20111201
  2. CRESTOR [Concomitant]
     Indication: BLOOD CHOLESTEROL INCREASED
     Route: 048
  3. XANAX [Concomitant]
     Indication: ANXIETY
  4. SEROQUEL [Suspect]
     Indication: ANXIETY
     Route: 048
     Dates: end: 20111201
  5. ZOLOFT [Suspect]
     Indication: DEPRESSION
     Route: 065
     Dates: start: 20040101
  6. ZOLOFT [Suspect]
     Route: 065
     Dates: start: 20120522

REACTIONS (4)
  - DRUG INEFFECTIVE [None]
  - IMPAIRED WORK ABILITY [None]
  - DEPRESSION [None]
  - INTENTIONAL DRUG MISUSE [None]
